FAERS Safety Report 25149431 (Version 5)
Quarter: 2025Q2

REPORT INFORMATION
  Report Type: Spontaneous
  Country: AU (occurrence: AU)
  Receive Date: 20250402
  Receipt Date: 20250509
  Transmission Date: 20250716
  Serious: Yes (Death, Hospitalization, Other)
  Sender: Kenvue
  Company Number: AU-KENVUE-20250307617

PATIENT

DRUGS (5)
  1. ACETAMINOPHEN [Suspect]
     Active Substance: ACETAMINOPHEN
     Indication: Pain
     Route: 048
     Dates: start: 2022
  2. ACETAMINOPHEN [Suspect]
     Active Substance: ACETAMINOPHEN
     Indication: Pyrexia
     Dosage: 2 DOSAGE FORM, FOUR TIME A DAY
     Route: 048
     Dates: start: 2022
  3. ACETAMINOPHEN [Suspect]
     Active Substance: ACETAMINOPHEN
     Dosage: 1 GRAM, TWICE A DAY
     Route: 048
     Dates: start: 20220725, end: 20221114
  4. PALIPERIDONE [Suspect]
     Active Substance: PALIPERIDONE
     Indication: Product used for unknown indication
     Route: 065
  5. BUPRENORPHINE [Suspect]
     Active Substance: BUPRENORPHINE
     Indication: Product used for unknown indication
     Route: 065
     Dates: start: 2022

REACTIONS (8)
  - Acute hepatic failure [Fatal]
  - Tachycardia [Fatal]
  - Urinary retention [Fatal]
  - Pneumonia [Fatal]
  - Overdose [Fatal]
  - Product dispensing error [Fatal]
  - Adverse event [Fatal]
  - Constipation [Fatal]

NARRATIVE: CASE EVENT DATE: 20220101
